FAERS Safety Report 17171248 (Version 1)
Quarter: 2019Q4

REPORT INFORMATION
  Report Type: Spontaneous
  Country: US (occurrence: US)
  Receive Date: 20191218
  Receipt Date: 20191218
  Transmission Date: 20200122
  Serious: No
  Sender: FDA-Public Use
  Company Number: US-SUPERNUS PHARMACEUTICALS, INC.-2019SUP00289

PATIENT
  Age: 78 Year
  Sex: Female
  Weight: 79.37 kg

DRUGS (13)
  1. ATENOLOL. [Concomitant]
     Active Substance: ATENOLOL
     Dosage: 25 MG, 1X/DAY
  2. TROKENDI XR [Suspect]
     Active Substance: TOPIRAMATE
     Indication: MIGRAINE
     Dosage: 50 MG, 1X/DAY IN THE MORNING WITH WATER
     Route: 048
     Dates: start: 20190402, end: 201904
  3. OMEPRAZOLE. [Concomitant]
     Active Substance: OMEPRAZOLE
     Indication: GASTRIC DISORDER
     Dosage: UNK, 1X/DAY
  4. GLIMEPIRIDE. [Concomitant]
     Active Substance: GLIMEPIRIDE
     Dosage: 2 MG, 1X/DAY
  5. LOW DOSE ASPIRIN [Concomitant]
     Active Substance: ASPIRIN
     Dosage: UNK, 1X/DAY
  6. LEVOTHYROXINE. [Concomitant]
     Active Substance: LEVOTHYROXINE
     Dosage: 125 ?G, 1X/DAY
  7. TROKENDI XR [Suspect]
     Active Substance: TOPIRAMATE
     Indication: MIGRAINE
     Dosage: 25 MG, 1X/DAY IN THE MORNING WITH WATER
     Route: 048
     Dates: start: 20190326, end: 20190401
  8. CALCIUM [Concomitant]
     Active Substance: CALCIUM
     Dosage: UNK, 1X/DAY
  9. SERTRALINE [Concomitant]
     Active Substance: SERTRALINE HYDROCHLORIDE
     Dosage: UNK, 1X/DAY
  10. TROKENDI XR [Suspect]
     Active Substance: TOPIRAMATE
     Dosage: 75 MG, 1X/DAY IN THE MORNING WITH WATER
     Route: 048
     Dates: start: 20190409, end: 201904
  11. TROKENDI XR [Suspect]
     Active Substance: TOPIRAMATE
     Indication: MIGRAINE
     Dosage: 100 MG, 1X/DAY IN THE MORNING WITH WATER
     Route: 048
     Dates: start: 201904, end: 201904
  12. MAGNESIUM [Concomitant]
     Active Substance: MAGNESIUM
     Dosage: UNK, 1X/DAY
  13. COMPLETE VITAMIN [Concomitant]
     Dosage: UNK, 1X/DAY

REACTIONS (5)
  - Weight increased [Not Recovered/Not Resolved]
  - Hypophagia [Unknown]
  - Taste disorder [Recovering/Resolving]
  - Nausea [Recovering/Resolving]
  - Thirst decreased [Unknown]

NARRATIVE: CASE EVENT DATE: 201903
